FAERS Safety Report 24728243 (Version 3)
Quarter: 2025Q1

REPORT INFORMATION
  Report Type: Spontaneous
  Country: US (occurrence: US)
  Receive Date: 20241212
  Receipt Date: 20250122
  Transmission Date: 20250408
  Serious: No
  Sender: JOHNSON AND JOHNSON
  Company Number: US-JNJFOC-20241161810

PATIENT
  Age: 89 Year
  Sex: Male

DRUGS (1)
  1. XARELTO [Suspect]
     Active Substance: RIVAROXABAN
     Indication: Cardiac valve disease
     Route: 048

REACTIONS (4)
  - Product packaging quantity issue [Unknown]
  - Product dose omission issue [Unknown]
  - Lacrimation increased [Unknown]
  - Off label use [Unknown]

NARRATIVE: CASE EVENT DATE: 20241104
